FAERS Safety Report 6678764-6 (Version None)
Quarter: 2010Q2

REPORT INFORMATION
  Report Type: 
  Country: None (occurrence: None)
  Receive Date: 20100408
  Receipt Date: 20100324
  Transmission Date: 20101027
  Serious: Yes (Hospitalization, Disabling, Other)
  Sender: FDA-Public Use
  Company Number: 2010001052

PATIENT
  Age: 76 Year
  Sex: Female

DRUGS (1)
  1. TARCEVA [Suspect]
     Indication: LUNG ADENOCARCINOMA
     Dosage: (150 MG), ORAL
     Route: 048
     Dates: start: 20090707, end: 20091219

REACTIONS (4)
  - BLINDNESS UNILATERAL [None]
  - KERATOCONJUNCTIVITIS SICCA [None]
  - NO THERAPEUTIC RESPONSE [None]
  - ULCERATIVE KERATITIS [None]
